FAERS Safety Report 10079673 (Version 1)
Quarter: 2014Q2

REPORT INFORMATION
  Report Type: Spontaneous
  Country: US (occurrence: US)
  Receive Date: 20140415
  Receipt Date: 20140415
  Transmission Date: 20141212
  Serious: No
  Sender: FDA-Public Use
  Company Number: US-BAXTER-2014BAX016746

PATIENT
  Sex: Female
  Weight: 109.55 kg

DRUGS (11)
  1. DIANEAL LOW CALCIUM [Suspect]
     Indication: RENAL FAILURE CHRONIC
     Route: 033
     Dates: start: 201304
  2. DIANEAL LOW CALCIUM [Suspect]
     Route: 033
     Dates: start: 201304
  3. DIANEAL LOW CALCIUM [Suspect]
     Indication: RENAL FAILURE CHRONIC
     Route: 033
     Dates: start: 201304
  4. DIANEAL LOW CALCIUM [Suspect]
     Route: 033
     Dates: start: 201304
  5. DIANEAL LOW CALCIUM [Suspect]
     Indication: RENAL FAILURE CHRONIC
     Route: 033
     Dates: start: 201304
  6. DIANEAL LOW CALCIUM [Suspect]
     Route: 033
     Dates: start: 201304
  7. DIANEAL LOW CALCIUM [Suspect]
     Route: 033
  8. DIANEAL LOW CALCIUM (ULTRABAG) [Suspect]
     Indication: RENAL FAILURE CHRONIC
     Route: 033
     Dates: start: 201304
  9. DIANEAL LOW CALCIUM (ULTRABAG) [Suspect]
     Indication: RENAL FAILURE CHRONIC
     Route: 033
     Dates: start: 201304
  10. DIANEAL LOW CALCIUM (ULTRABAG) [Suspect]
     Indication: RENAL FAILURE CHRONIC
     Route: 033
     Dates: start: 201304
  11. DIANEAL LOW CALCIUM (ULTRABAG) [Suspect]
     Route: 033
     Dates: start: 201304

REACTIONS (2)
  - Oedema [Not Recovered/Not Resolved]
  - Blood albumin decreased [Not Recovered/Not Resolved]
